FAERS Safety Report 17545399 (Version 1)
Quarter: 2020Q1

REPORT INFORMATION
  Report Type: Spontaneous
  Country: US (occurrence: US)
  Receive Date: 20200316
  Receipt Date: 20200316
  Transmission Date: 20200409
  Serious: Yes (Other)
  Sender: FDA-Public Use
  Company Number: US-ZYDUS-048431

PATIENT
  Age: 58 Year
  Sex: Female

DRUGS (1)
  1. OXYCODONE [Suspect]
     Active Substance: OXYCODONE
     Indication: FRACTURE
     Route: 065

REACTIONS (3)
  - Dysphagia [Unknown]
  - Oesophageal obstruction [Unknown]
  - Oesophageal motility disorder [Unknown]
